FAERS Safety Report 13452875 (Version 1)
Quarter: 2017Q2

REPORT INFORMATION
  Report Type: Spontaneous
  Country: GB (occurrence: GB)
  Receive Date: 20170418
  Receipt Date: 20170418
  Transmission Date: 20170830
  Serious: Yes (Hospitalization, Other)
  Sender: FDA-Public Use
  Company Number: GB-009507513-1702GBR003935

PATIENT
  Age: 28 Year
  Sex: Female

DRUGS (1)
  1. NEXPLANON [Suspect]
     Active Substance: ETONOGESTREL
     Dosage: 1 IMPLANT, UNK
     Route: 065
     Dates: start: 20151215

REACTIONS (7)
  - Drug dose omission [Unknown]
  - Pregnancy with implant contraceptive [Recovered/Resolved]
  - Complication of device insertion [Unknown]
  - Obstetrical pulmonary embolism [Unknown]
  - Labour complication [Unknown]
  - Complication associated with device [Unknown]
  - Unintended pregnancy [Recovered/Resolved]

NARRATIVE: CASE EVENT DATE: 20151215
